FAERS Safety Report 7705742-8 (Version None)
Quarter: 2011Q3

REPORT INFORMATION
  Report Type: 
  Country: None (occurrence: None)
  Receive Date: 20110824
  Receipt Date: 20110812
  Transmission Date: 20111222
  Serious: Yes (Hospitalization)
  Sender: FDA-Public Use
  Company Number: MX-SANOFI-AVENTIS-2011SA044136

PATIENT
  Age: 75 Year
  Sex: Female
  Weight: 40 kg

DRUGS (4)
  1. CARVEDILOL [Concomitant]
  2. WARFARIN SODIUM [Concomitant]
  3. OMEPRAZOLE [Concomitant]
     Route: 065
  4. DRONEDARONE HCL [Suspect]
     Indication: ATRIAL FIBRILLATION
     Route: 048
     Dates: start: 20110509

REACTIONS (2)
  - TOXICITY TO VARIOUS AGENTS [None]
  - ATRIOVENTRICULAR BLOCK [None]
